FAERS Safety Report 9504765 (Version 1)
Quarter: 2013Q3

REPORT INFORMATION
  Report Type: Spontaneous
  Country: AU (occurrence: AU)
  Receive Date: 20130906
  Receipt Date: 20130906
  Transmission Date: 20140515
  Serious: Yes (Death)
  Sender: FDA-Public Use
  Company Number: AU-B.I. PHARMACEUTICALS,INC./RIDGEFIELD-2013-BI-27574AU

PATIENT
  Sex: 0

DRUGS (1)
  1. PRADAXA [Suspect]

REACTIONS (1)
  - Haemorrhage intracranial [Fatal]
